FAERS Safety Report 11064570 (Version 3)
Quarter: 2015Q2

REPORT INFORMATION
  Report Type: Spontaneous
  Country: JP (occurrence: JP)
  Receive Date: 20150424
  Receipt Date: 20150522
  Transmission Date: 20150821
  Serious: Yes (Hospitalization)
  Sender: FDA-Public Use
  Company Number: PHHY2015JP048018

PATIENT
  Age: 73 Year
  Sex: Female
  Weight: 51 kg

DRUGS (6)
  1. FAMVIR [Suspect]
     Active Substance: FAMCICLOVIR
     Dosage: 750 MG, QD
     Route: 048
     Dates: start: 20150416, end: 20150416
  2. FAMVIR [Suspect]
     Active Substance: FAMCICLOVIR
     Dosage: 250 MG, TID
     Route: 048
     Dates: start: 20150417
  3. FAMVIR [Suspect]
     Active Substance: FAMCICLOVIR
     Indication: HERPES ZOSTER
     Dosage: 500 MG, BID (2 TAB AT NOON AND 2 TAB IN THE EVENING)
     Route: 048
     Dates: start: 20150415, end: 20150415
  4. FAMOTIDINE. [Concomitant]
     Active Substance: FAMOTIDINE
     Indication: PRODUCT USED FOR UNKNOWN INDICATION
     Dosage: 20 MG, QD
     Route: 048
  5. AMLODIPINE [Concomitant]
     Active Substance: AMLODIPINE BESYLATE
     Indication: PRODUCT USED FOR UNKNOWN INDICATION
     Dosage: 2.5 MG, DAILY
     Route: 048
  6. IRBETAN [Concomitant]
     Active Substance: IRBESARTAN
     Indication: PRODUCT USED FOR UNKNOWN INDICATION
     Dosage: 100 MG, QD
     Route: 048

REACTIONS (2)
  - Nausea [Recovered/Resolved]
  - Altered state of consciousness [Recovered/Resolved]

NARRATIVE: CASE EVENT DATE: 20150416
